FAERS Safety Report 8427599-2 (Version None)
Quarter: 2012Q2

REPORT INFORMATION
  Report Type: 
  Country: None (occurrence: None)
  Receive Date: 20120323
  Receipt Date: 20111205
  Transmission Date: 20120825
  Serious: Yes (Other)
  Sender: FDA-Public Use
  Company Number: 163-21880-11120649

PATIENT
  Age: 77 Year
  Sex: Male
  Weight: 77.1115 kg

DRUGS (5)
  1. VELCADE [Concomitant]
  2. DEXAMETHASONE [Concomitant]
  3. ZOMETA [Concomitant]
  4. REVLIMID [Suspect]
     Indication: MULTIPLE MYELOMA
     Dosage: 25 MG, DAILY X 21 DAYS, PO ; 10 MG, DAILY X 21 DAYS, PO
     Route: 048
     Dates: start: 20111201
  5. REVLIMID [Suspect]
     Indication: MULTIPLE MYELOMA
     Dosage: 25 MG, DAILY X 21 DAYS, PO ; 10 MG, DAILY X 21 DAYS, PO
     Route: 048
     Dates: start: 20110901

REACTIONS (1)
  - PANCYTOPENIA [None]
